FAERS Safety Report 6243400-X (Version None)
Quarter: 2009Q2

REPORT INFORMATION
  Report Type: 
  Country: None (occurrence: None)
  Receive Date: 20090622
  Receipt Date: 20090622
  Transmission Date: 20091009
  Serious: Yes (Other)
  Sender: FDA-Public Use
  Company Number: None

PATIENT
  Age: 50 Year
  Sex: Female
  Weight: 110.6777 kg

DRUGS (2)
  1. ZICAM NASAL SWABS DON'T REMEMBER IT WAS A ZICAM PRODUCT [Suspect]
     Indication: NASOPHARYNGITIS
     Dosage: ONE SWAB APPROX. 8 HOURS NASAL
     Route: 045
     Dates: start: 20080904, end: 20080910
  2. ZICAM NASAL GEL DON'T REMEMBER IT WAS A ZICAM PRODUCT [Suspect]
     Indication: NASOPHARYNGITIS
     Dosage: ONE SQUIRT APPROX 8 HOURS NASAL
     Route: 045
     Dates: start: 20081110, end: 20081115

REACTIONS (1)
  - HYPOSMIA [None]
